FAERS Safety Report 9961800 (Version 1)
Quarter: 2014Q1

REPORT INFORMATION
  Report Type: Report from Study
  Country: US (occurrence: US)
  Receive Date: 20140305
  Receipt Date: 20140305
  Transmission Date: 20141002
  Serious: No
  Sender: FDA-Public Use
  Company Number: US-ABBVIE-13P-163-1113342-00

PATIENT
  Age: 26 Year
  Sex: Female

DRUGS (7)
  1. HUMIRA [Suspect]
     Indication: CROHN^S DISEASE
     Dates: start: 20130602
  2. PROTONIX [Concomitant]
     Indication: CROHN^S DISEASE
     Route: 048
  3. BENTYL [Concomitant]
     Indication: CROHN^S DISEASE
     Route: 048
  4. MARINOL [Concomitant]
     Indication: PAIN
     Dosage: 2.5 BY MOUTH THREE TIMES A DAY AS NEEDED
     Route: 048
  5. MARINOL [Concomitant]
     Indication: INCREASED APPETITE
  6. VITAMIN D NOS [Concomitant]
     Indication: VITAMIN D DECREASED
     Dosage: 4000 IU BY MOUTH EVERYDAY
     Route: 048
  7. VITAMIN B12 [Concomitant]
     Indication: VITAMIN B12 DEFICIENCY
     Route: 050

REACTIONS (3)
  - Loss of consciousness [Recovered/Resolved]
  - Fall [Recovered/Resolved]
  - Head injury [Recovered/Resolved]
